FAERS Safety Report 9514279 (Version 1)
Quarter: 2013Q3

REPORT INFORMATION
  Report Type: Spontaneous
  Country: GB (occurrence: GB)
  Receive Date: 20130910
  Receipt Date: 20130910
  Transmission Date: 20140515
  Serious: Yes (Other)
  Sender: FDA-Public Use
  Company Number: GB-SANOFI-AVENTIS-2013SA088894

PATIENT
  Sex: Female

DRUGS (9)
  1. FEXOFENADINE HYDROCHLORIDE [Suspect]
     Indication: HYPERSENSITIVITY
     Route: 048
     Dates: start: 20031103
  2. SPIRIVA [Suspect]
     Indication: CHRONIC OBSTRUCTIVE PULMONARY DISEASE
     Route: 055
     Dates: start: 20031217
  3. SYMBICORT [Concomitant]
  4. PAROXETINE HYDROCHLORIDE [Concomitant]
  5. RIZATRIPTAN [Concomitant]
  6. TERBUTALINE [Concomitant]
  7. PROPRANOLOL [Concomitant]
  8. SEREVENT [Concomitant]
  9. TRAMADOL HYDROCHLORIDE [Concomitant]

REACTIONS (7)
  - Gastrooesophageal reflux disease [Unknown]
  - Muscle spasms [Unknown]
  - Oesophageal spasm [Unknown]
  - Dystonia [Unknown]
  - Extrapyramidal disorder [Unknown]
  - Gastrointestinal disorder [Unknown]
  - Gastrointestinal inflammation [Unknown]
